FAERS Safety Report 11417152 (Version 1)
Quarter: 2015Q3

REPORT INFORMATION
  Report Type: Spontaneous
  Country: FR (occurrence: FR)
  Receive Date: 20150825
  Receipt Date: 20150825
  Transmission Date: 20151125
  Serious: Yes (Hospitalization)
  Sender: FDA-Public Use
  Company Number: FR-MALLINCKRODT-T201503989

PATIENT
  Age: 83 Year
  Sex: Female

DRUGS (6)
  1. OPTIJECT 350 [Suspect]
     Active Substance: IOVERSOL
     Indication: COMPUTERISED TOMOGRAM
     Dosage: 90 ML, SINGLE
     Route: 065
     Dates: start: 20150617, end: 20150617
  2. STABLON [Concomitant]
     Active Substance: TIANEPTINE
  3. FORLAX [Concomitant]
     Active Substance: POLYETHYLENE GLYCOL 4000
  4. EUPANTOL [Concomitant]
     Active Substance: PANTOPRAZOLE SODIUM
  5. UVEDOSE [Concomitant]
     Active Substance: CHOLECALCIFEROL
  6. TANAKAN [Concomitant]
     Active Substance: GINKGO

REACTIONS (3)
  - Purpura [Unknown]
  - Erythema [Not Recovered/Not Resolved]
  - Petechiae [Recovered/Resolved]

NARRATIVE: CASE EVENT DATE: 20150624
